FAERS Safety Report 8398613-8 (Version None)
Quarter: 2012Q2

REPORT INFORMATION
  Report Type: 
  Country: None (occurrence: None)
  Receive Date: 20120531
  Receipt Date: 20120522
  Transmission Date: 20120825
  Serious: Yes (Other)
  Sender: FDA-Public Use
  Company Number: CH-BRISTOL-MYERS SQUIBB COMPANY-16610529

PATIENT
  Age: 52 Year
  Sex: Female

DRUGS (2)
  1. ARAVA [Suspect]
  2. ORENCIA [Suspect]
     Indication: RHEUMATOID ARTHRITIS
     Route: 041
     Dates: start: 20080201

REACTIONS (1)
  - HEPATIC ENZYME INCREASED [None]
